FAERS Safety Report 15883486 (Version 1)
Quarter: 2019Q1

REPORT INFORMATION
  Report Type: Report from Study
  Country: GB (occurrence: GB)
  Receive Date: 20190129
  Receipt Date: 20190129
  Transmission Date: 20190417
  Serious: Yes (Hospitalization)
  Sender: FDA-Public Use
  Company Number: GB-ROCHE-2252775

PATIENT
  Sex: Female
  Weight: 99 kg

DRUGS (1)
  1. RITUXIMAB. [Suspect]
     Active Substance: RITUXIMAB
     Indication: RHEUMATOID ARTHRITIS
     Route: 042
     Dates: start: 20080229, end: 20080414

REACTIONS (2)
  - Petechiae [Unknown]
  - Infusion related reaction [Unknown]

NARRATIVE: CASE EVENT DATE: 20080414
